FAERS Safety Report 4397027-5 (Version None)
Quarter: 2004Q3

REPORT INFORMATION
  Report Type: 
  Country: None (occurrence: None)
  Receive Date: 20040714
  Receipt Date: 20040707
  Transmission Date: 20050211
  Serious: Yes (Death, Hospitalization, Other)
  Sender: FDA-Public Use
  Company Number: PHBS2004ES09174

PATIENT
  Age: 44 Year
  Sex: Male

DRUGS (2)
  1. CYCLOSPORINE [Suspect]
     Indication: RENAL TRANSPLANT
     Route: 065
  2. PREDNISONE [Concomitant]

REACTIONS (17)
  - BRAIN ABSCESS [None]
  - CLOSTRIDIUM COLITIS [None]
  - CONVULSION [None]
  - CRACKLES LUNG [None]
  - DEEP VEIN THROMBOSIS [None]
  - DYSPHASIA [None]
  - HEMIPARESIS [None]
  - INFECTION [None]
  - LUNG INFECTION PSEUDOMONAL [None]
  - MYOSITIS [None]
  - NOCARDIOSIS [None]
  - OEDEMA PERIPHERAL [None]
  - POSTOPERATIVE INFECTION [None]
  - RENAL FAILURE [None]
  - SOFT TISSUE INFECTION [None]
  - SUBDURAL EMPYEMA [None]
  - SYSTEMIC CANDIDA [None]
